FAERS Safety Report 8991058 (Version 1)
Quarter: 2012Q4

REPORT INFORMATION
  Report Type: Spontaneous
  Country: US (occurrence: None)
  Receive Date: 20121227
  Receipt Date: 20121227
  Transmission Date: 20130627
  Serious: Yes (Other)
  Sender: FDA-Public Use
  Company Number: None

PATIENT
  Age: 24 Year
  Sex: Female
  Weight: 50.9 kg

DRUGS (1)
  1. KEPPRA [Suspect]
     Indication: GENERALIZED CONVULSIVE EPILEPSY, WITH INTRACTABLE EPILEPSY
     Route: 048
     Dates: start: 20070718

REACTIONS (1)
  - Convulsion [None]
